FAERS Safety Report 9626614 (Version 2)
Quarter: 2013Q4

REPORT INFORMATION
  Report Type: Report from Study
  Country: GB (occurrence: GB)
  Receive Date: 20131016
  Receipt Date: 20131104
  Transmission Date: 20140711
  Serious: Yes (Hospitalization)
  Sender: FDA-Public Use
  Company Number: GB-GLAXOSMITHKLINE-B0929584A

PATIENT
  Age: 74 Year
  Sex: Male
  Weight: 70 kg

DRUGS (16)
  1. OFATUMUMAB [Suspect]
     Indication: CHRONIC LYMPHOCYTIC LEUKAEMIA
     Dosage: 100MG CYCLIC
     Route: 042
     Dates: start: 20130904
  2. BENDAMUSTINE [Suspect]
     Indication: CHRONIC LYMPHOCYTIC LEUKAEMIA
     Dosage: 130MG CYCLIC
     Route: 042
     Dates: start: 20130904
  3. PARACETAMOL [Concomitant]
     Indication: CHRONIC LYMPHOCYTIC LEUKAEMIA
     Route: 048
     Dates: start: 20130904
  4. CHLORPHENIRAMINE [Concomitant]
     Indication: CHRONIC LYMPHOCYTIC LEUKAEMIA
     Route: 048
     Dates: start: 20130904
  5. PREDNISOLONE [Concomitant]
     Indication: CHRONIC LYMPHOCYTIC LEUKAEMIA
     Route: 048
     Dates: start: 20130903, end: 20130905
  6. ALLOPURINOL [Concomitant]
     Indication: CHRONIC LYMPHOCYTIC LEUKAEMIA
     Route: 048
     Dates: start: 20130904
  7. METOCLOPRAMIDE [Concomitant]
     Indication: CHRONIC LYMPHOCYTIC LEUKAEMIA
     Route: 048
     Dates: start: 20130904
  8. ACICLOVIR [Concomitant]
     Indication: CHRONIC LYMPHOCYTIC LEUKAEMIA
     Route: 048
     Dates: start: 20130904
  9. GRANULOCYTE COLONY-STIMULATING FACTOR NOS [Concomitant]
  10. OMEPRAZOLE [Concomitant]
     Dosage: 10MG PER DAY
     Route: 048
     Dates: start: 20130904
  11. METOCLOPRAMIDE [Concomitant]
     Dosage: 10MG AS REQUIRED
     Route: 048
     Dates: start: 20130904
  12. ACICLOVIR [Concomitant]
     Dosage: 200MG THREE TIMES PER DAY
     Route: 048
     Dates: start: 20130904
  13. LOSARTAN [Concomitant]
     Dosage: 50MG PER DAY
     Route: 048
  14. ONDANSETRON [Concomitant]
     Dosage: 8MG TWICE PER DAY
     Route: 048
     Dates: start: 20130904
  15. TRAMADOL [Concomitant]
     Dosage: 100MG TWICE PER DAY
     Route: 048
  16. SIMVASTATIN [Concomitant]
     Dosage: 1000MG AS REQUIRED
     Route: 048

REACTIONS (3)
  - Lower respiratory tract infection [Recovered/Resolved]
  - Diarrhoea [Recovered/Resolved]
  - Vomiting [Recovered/Resolved]
